FAERS Safety Report 14560727 (Version 1)
Quarter: 2018Q1

REPORT INFORMATION
  Report Type: Spontaneous
  Country: US (occurrence: US)
  Receive Date: 20180222
  Receipt Date: 20180222
  Transmission Date: 20180509
  Serious: No
  Sender: FDA-Public Use
  Company Number: US-JNJFOC-20180220009

PATIENT
  Age: 35 Year
  Sex: Male
  Weight: 72.58 kg

DRUGS (3)
  1. RISPERIDONE. [Suspect]
     Active Substance: RISPERIDONE
     Indication: ANXIETY
     Route: 048
     Dates: start: 20180206, end: 201802
  2. TRAMADOL. [Interacting]
     Active Substance: TRAMADOL
     Indication: BACK PAIN
     Route: 065
  3. INVEGA SUSTENNA [Suspect]
     Active Substance: PALIPERIDONE PALMITATE
     Indication: ANXIETY
     Route: 030
     Dates: start: 20180209

REACTIONS (8)
  - Tremor [Not Recovered/Not Resolved]
  - Fatigue [Unknown]
  - Lethargy [Unknown]
  - Drug interaction [Unknown]
  - Sluggishness [Unknown]
  - Hypertension [Recovered/Resolved]
  - Hypersensitivity [Unknown]
  - Somnolence [Unknown]

NARRATIVE: CASE EVENT DATE: 201802
